FAERS Safety Report 13181440 (Version 4)
Quarter: 2017Q2

REPORT INFORMATION
  Report Type: Spontaneous
  Country: US (occurrence: US)
  Receive Date: 20170202
  Receipt Date: 20170626
  Transmission Date: 20170830
  Serious: Yes (Hospitalization, Other)
  Sender: FDA-Public Use
  Company Number: US-PFIZER INC-2017045615

PATIENT
  Age: 66 Year
  Sex: Female

DRUGS (1)
  1. XELJANZ XR [Suspect]
     Active Substance: TOFACITINIB CITRATE
     Indication: RHEUMATOID ARTHRITIS
     Dosage: 11 MG, 1X/DAY

REACTIONS (6)
  - Cellulitis [Recovered/Resolved]
  - Cough [Unknown]
  - Lower respiratory tract infection bacterial [Unknown]
  - Sinusitis [Recovered/Resolved]
  - Compression fracture [Unknown]
  - Malaise [Unknown]

NARRATIVE: CASE EVENT DATE: 201610
